FAERS Safety Report 9926329 (Version 1)
Quarter: 2014Q1

REPORT INFORMATION
  Report Type: Spontaneous
  Country: US (occurrence: US)
  Receive Date: 20140226
  Receipt Date: 20140226
  Transmission Date: 20141002
  Serious: No
  Sender: FDA-Public Use
  Company Number: US-009507513-1402USA011184

PATIENT
  Sex: Female

DRUGS (3)
  1. JANUMET [Suspect]
     Route: 048
  2. VICTOZA [Concomitant]
     Dosage: 1.8 MG (FREQUENCY NOT REPORTED)
     Dates: start: 20140114
  3. METFORMIN [Concomitant]
     Dosage: 1000 MG TWICE A DAY

REACTIONS (4)
  - Feeling abnormal [Unknown]
  - Blood glucose increased [Unknown]
  - Somnolence [Unknown]
  - Fatigue [Unknown]
